FAERS Safety Report 8133659-6 (Version None)
Quarter: 2012Q1

REPORT INFORMATION
  Report Type: 
  Country: None (occurrence: None)
  Receive Date: 20120213
  Receipt Date: 20120203
  Transmission Date: 20120608
  Serious: Yes (Hospitalization)
  Sender: FDA-Public Use
  Company Number: JP-BRISTOL-MYERS SQUIBB COMPANY-16387581

PATIENT
  Age: 68 Year
  Sex: Female

DRUGS (14)
  1. INFREE S [Concomitant]
     Indication: RHEUMATOID ARTHRITIS
  2. CRESTOR [Concomitant]
  3. ORENCIA [Suspect]
     Indication: RHEUMATOID ARTHRITIS
     Dosage: INF ON 11OCT11,08NOV11,05DEC11,26DEC11 DOSE:500MG
     Route: 041
     Dates: start: 20110606
  4. TRICHLORMETHIAZIDE [Concomitant]
  5. BACTRIM [Concomitant]
     Indication: PROPHYLAXIS
  6. PREDNISOLONE [Concomitant]
     Indication: RHEUMATOID ARTHRITIS
     Route: 048
  7. NORVASC [Concomitant]
  8. AMARYL [Concomitant]
  9. TACROLIMUS [Concomitant]
     Indication: RHEUMATOID ARTHRITIS
     Dosage: TACROLIMUS HYDRATE
  10. DIOVAN [Concomitant]
  11. BLADDERON [Concomitant]
  12. LOSARTAN POTASSIUM [Concomitant]
  13. RABEPRAZOLE SODIUM [Concomitant]
  14. BASEN [Concomitant]

REACTIONS (1)
  - ATRIAL FIBRILLATION [None]
